FAERS Safety Report 13054367 (Version 1)
Quarter: 2016Q4

REPORT INFORMATION
  Report Type: Spontaneous
  Country: AU (occurrence: AU)
  Receive Date: 20161222
  Receipt Date: 20161222
  Transmission Date: 20170207
  Serious: Yes (Other)
  Sender: FDA-Public Use
  Company Number: AU-PFIZER INC-2016592348

PATIENT
  Sex: Male

DRUGS (1)
  1. ZELDOX [Suspect]
     Active Substance: ZIPRASIDONE
     Dosage: UNK

REACTIONS (7)
  - Pruritus [Unknown]
  - Insomnia [Unknown]
  - Anaphylactic reaction [Unknown]
  - Somnolence [Unknown]
  - Headache [Unknown]
  - Impaired driving ability [Unknown]
  - Weight decreased [Unknown]
